FAERS Safety Report 7100892-1 (Version None)
Quarter: 2010Q4

REPORT INFORMATION
  Report Type: 
  Country: None (occurrence: None)
  Receive Date: 20101113
  Receipt Date: 20100329
  Transmission Date: 20110411
  Serious: No
  Sender: FDA-Public Use
  Company Number: US-ALLERGAN-1004116US

PATIENT
  Age: 41 Year
  Sex: Female

DRUGS (2)
  1. BOTOX COSMETIC [Suspect]
     Indication: SKIN WRINKLING
     Dosage: 50 UNITS, SINGLE
     Dates: start: 20100225, end: 20100225
  2. BOTOX COSMETIC [Suspect]
     Dosage: 25 UNITS, SINGLE
     Dates: start: 20100305, end: 20100305

REACTIONS (1)
  - THERAPEUTIC RESPONSE DECREASED [None]
